FAERS Safety Report 5179885-X (Version None)
Quarter: 2006Q4

REPORT INFORMATION
  Report Type: 
  Country: None (occurrence: None)
  Receive Date: 20061211
  Receipt Date: 20061129
  Transmission Date: 20070319
  Serious: Yes (Other)
  Sender: FDA-Public Use
  Company Number: 2006107267

PATIENT
  Age: 37 Year
  Sex: Female
  Weight: 107 kg

DRUGS (6)
  1. SERTRALINE [Suspect]
     Indication: ANXIETY
     Dosage: 50 MG (50 MG, 1 IN 1 D), ORAL
     Route: 048
     Dates: start: 20060323, end: 20060914
  2. SERTRALINE [Suspect]
     Indication: DEPRESSION
     Dosage: 50 MG (50 MG, 1 IN 1 D), ORAL
     Route: 048
     Dates: start: 20060323, end: 20060914
  3. SERTRALINE [Suspect]
     Indication: PANIC REACTION
     Dosage: 50 MG (50 MG, 1 IN 1 D), ORAL
     Route: 048
     Dates: start: 20060323, end: 20060914
  4. FLUOXETINE [Suspect]
     Indication: ANXIETY
     Dates: start: 20060914
  5. FLUOXETINE [Suspect]
     Indication: PANIC REACTION
     Dates: start: 20060914
  6. .. [Concomitant]

REACTIONS (6)
  - BLOOD PRESSURE INCREASED [None]
  - CAESAREAN SECTION [None]
  - DRUG INEFFECTIVE [None]
  - PLACENTA PRAEVIA [None]
  - PREGNANCY [None]
  - VAGINAL HAEMORRHAGE [None]
